FAERS Safety Report 16260065 (Version 2)
Quarter: 2019Q2

REPORT INFORMATION
  Report Type: Spontaneous
  Country: US (occurrence: US)
  Receive Date: 20190501
  Receipt Date: 20190627
  Transmission Date: 20190711
  Serious: No
  Sender: FDA-Public Use
  Company Number: US-AMGEN-USASP2019065223

PATIENT
  Age: 80 Year
  Sex: Female

DRUGS (1)
  1. PROLIA [Suspect]
     Active Substance: DENOSUMAB
     Indication: OSTEOPOROSIS
     Dosage: 60 MILLIGRAM, Q6MO
     Route: 065

REACTIONS (16)
  - Sleep disorder due to a general medical condition [Unknown]
  - Pain [Unknown]
  - Pruritus [Unknown]
  - Back pain [Unknown]
  - Myalgia [Unknown]
  - Drug ineffective [Unknown]
  - Rash [Not Recovered/Not Resolved]
  - Neck pain [Unknown]
  - Muscle spasms [Unknown]
  - Dyspnoea [Unknown]
  - Asthma [Recovered/Resolved]
  - Abdominal pain upper [Unknown]
  - Vomiting [Unknown]
  - Pain in extremity [Unknown]
  - Anaemia [Unknown]
  - Asthenia [Unknown]
